FAERS Safety Report 22143247 (Version 1)
Quarter: 2023Q1

REPORT INFORMATION
  Report Type: Report from Study
  Country: CA (occurrence: CA)
  Receive Date: 20230327
  Receipt Date: 20230327
  Transmission Date: 20230418
  Serious: Yes (Death)
  Sender: FDA-Public Use
  Company Number: CA-TAKEDA-2023TUS029960

PATIENT
  Age: 71 Year
  Sex: Female

DRUGS (1)
  1. VEDOLIZUMAB [Suspect]
     Active Substance: VEDOLIZUMAB
     Indication: Colitis ulcerative
     Dosage: 300 MILLIGRAM
     Route: 042
     Dates: start: 20220324, end: 20230123

REACTIONS (3)
  - Dyspnoea [Fatal]
  - Poor venous access [Unknown]
  - Contusion [Unknown]

NARRATIVE: CASE EVENT DATE: 20230321
